FAERS Safety Report 5556904-X (Version None)
Quarter: 2007Q4

REPORT INFORMATION
  Report Type: 
  Country: None (occurrence: None)
  Receive Date: 20071214
  Receipt Date: 20071211
  Transmission Date: 20080405
  Serious: Yes (Death, Other)
  Sender: FDA-Public Use
  Company Number: PHHO2007ES19282

PATIENT
  Age: 33 Year
  Sex: Female
  Weight: 25 kg

DRUGS (4)
  1. DIOVAN [Suspect]
     Indication: RENAL TRANSPLANT
     Dosage: NO TREATMENT
  2. SANDIMMUNE [Suspect]
     Indication: RENAL TRANSPLANT
     Route: 048
     Dates: start: 19931008
  3. MYFORTIC [Suspect]
     Indication: RENAL TRANSPLANT
  4. ATENOLOL [Concomitant]

REACTIONS (8)
  - CHILLS [None]
  - COUGH [None]
  - HAEMOPTYSIS [None]
  - HEADACHE [None]
  - PNEUMONIA [None]
  - PRODUCTIVE COUGH [None]
  - PYREXIA [None]
  - RENAL IMPAIRMENT [None]
